FAERS Safety Report 22136016 (Version 1)
Quarter: 2023Q1

REPORT INFORMATION
  Report Type: Spontaneous
  Country: US (occurrence: US)
  Receive Date: 20230324
  Receipt Date: 20230324
  Transmission Date: 20230418
  Serious: Yes (Other)
  Sender: FDA-Public Use
  Company Number: US-drreddys-LIT/USA/23/0162938

PATIENT
  Age: 48 Year
  Sex: Male

DRUGS (14)
  1. DOXORUBICIN [Suspect]
     Active Substance: DOXORUBICIN
     Indication: Diffuse large B-cell lymphoma
     Dosage: CYCLE 1-6
  2. ETOPOSIDE [Suspect]
     Active Substance: ETOPOSIDE
     Indication: Diffuse large B-cell lymphoma
     Dosage: CYCLE 1-2
  3. ETOPOSIDE [Suspect]
     Active Substance: ETOPOSIDE
     Dosage: CYCLE 3?6
  4. VINCRISTINE [Suspect]
     Active Substance: VINCRISTINE
     Indication: Diffuse large B-cell lymphoma
     Dosage: CYCLE ONE
  5. VINCRISTINE [Suspect]
     Active Substance: VINCRISTINE
     Dosage: CYCLE 2
  6. VINCRISTINE [Suspect]
     Active Substance: VINCRISTINE
     Dosage: CYCLE 3
  7. VINCRISTINE [Suspect]
     Active Substance: VINCRISTINE
     Dosage: CYCLE 4
  8. VINCRISTINE [Suspect]
     Active Substance: VINCRISTINE
     Dosage: CYCLE 5-6
  9. CYCLOPHOSPHAMIDE [Suspect]
     Active Substance: CYCLOPHOSPHAMIDE
     Indication: Diffuse large B-cell lymphoma
     Dosage: CYCLE 1-6
  10. DARATUMUMAB [Suspect]
     Active Substance: DARATUMUMAB
     Indication: Diffuse large B-cell lymphoma
     Dosage: CYCLE 1 ON DAY 1 AND DAY 8
  11. DARATUMUMAB [Suspect]
     Active Substance: DARATUMUMAB
     Dosage: CYCLE 2-6 ON DAY 1
  12. METHOTREXATE [Suspect]
     Active Substance: METHOTREXATE
     Indication: Diffuse large B-cell lymphoma
     Dosage: CYCLE 1, 3 AND 5 ON DAY 15
     Route: 037
  13. METHOTREXATE [Suspect]
     Active Substance: METHOTREXATE
     Dosage: CYCLE 2, 4 AND 6
     Route: 037
  14. METHOTREXATE [Suspect]
     Active Substance: METHOTREXATE
     Dosage: HIGH DOSE CYCLE 1, 3 AND 5 (HD MTX 6 G/M2 WITH DARA 16 MG/KG)

REACTIONS (8)
  - Anaemia [Unknown]
  - Neuropathy peripheral [Unknown]
  - Hypokalaemia [Unknown]
  - Malnutrition [Unknown]
  - Hypomagnesaemia [Unknown]
  - Infection [Unknown]
  - Diarrhoea [Unknown]
  - Product use in unapproved indication [Unknown]
